FAERS Safety Report 6372962-7 (Version None)
Quarter: 2009Q3

REPORT INFORMATION
  Report Type: 
  Country: None (occurrence: None)
  Receive Date: 20090924
  Receipt Date: 20090112
  Transmission Date: 20100115
  Serious: No
  Sender: FDA-Public Use
  Company Number: US-ASTRAZENECA-2008UW28392

PATIENT
  Sex: Male

DRUGS (4)
  1. SEROQUEL [Suspect]
     Indication: SLEEP DISORDER
     Dosage: 100-1200 MG
     Route: 048
     Dates: start: 20070101
  2. SEROQUEL [Suspect]
     Indication: TACHYPHRENIA
     Dosage: 100-1200 MG
     Route: 048
     Dates: start: 20070101
  3. AMBIEN [Concomitant]
  4. KLONOPIN [Concomitant]

REACTIONS (1)
  - OVERDOSE [None]
